FAERS Safety Report 4875916-2 (Version None)
Quarter: 2006Q1

REPORT INFORMATION
  Report Type: 
  Country: None (occurrence: None)
  Receive Date: 20060106
  Receipt Date: 20051228
  Transmission Date: 20060701
  Serious: Yes (Hospitalization)
  Sender: FDA-Public Use
  Company Number: 189585

PATIENT
  Age: 68 Year
  Sex: Female
  Weight: 48.9885 kg

DRUGS (10)
  1. AVONEX [Suspect]
     Indication: MULTIPLE SCLEROSIS
     Dosage: 30 UG;QW;IM
     Route: 030
     Dates: end: 20031101
  2. AVONEX [Suspect]
     Indication: MULTIPLE SCLEROSIS
     Dosage: IM
     Route: 030
  3. VOLTAREN [Concomitant]
  4. PRAVACHOL [Concomitant]
  5. IMIPRAMINE HCL [Concomitant]
  6. ... [Concomitant]
  7. CLONAZEPAM [Concomitant]
  8. HYDROCODONE BITARTRATE [Concomitant]
  9. DARVOCET [Concomitant]
  10. TOPROL-XL [Concomitant]

REACTIONS (6)
  - ANIMAL BITE [None]
  - FALL [None]
  - HEAD INJURY [None]
  - HIP ARTHROPLASTY [None]
  - LOCALISED INFECTION [None]
  - OSTEOARTHRITIS [None]
